FAERS Safety Report 12965047 (Version 1)
Quarter: 2016Q4

REPORT INFORMATION
  Report Type: Spontaneous
  Country: IT (occurrence: IT)
  Receive Date: 20161122
  Receipt Date: 20161122
  Transmission Date: 20170207
  Serious: Yes (Other)
  Sender: FDA-Public Use
  Company Number: IT-PFIZER INC-2016525300

PATIENT
  Age: 69 Year
  Sex: Female

DRUGS (5)
  1. MEDROL [Concomitant]
     Active Substance: METHYLPREDNISOLONE
     Route: 048
  2. LEVOFLOXACIN. [Suspect]
     Active Substance: LEVOFLOXACIN
     Indication: INFECTION
     Dosage: 1 DF, DAILY
     Route: 048
     Dates: start: 20161020, end: 20161024
  3. LANSOX [Concomitant]
     Active Substance: LANSOPRAZOLE
     Route: 048
  4. SIMVASTATIN. [Concomitant]
     Active Substance: SIMVASTATIN
     Route: 048
  5. CEFTRIAXONE SODIUM. [Suspect]
     Active Substance: CEFTRIAXONE SODIUM
     Indication: INFECTION
     Dosage: 1 DF, DAILY
     Route: 030
     Dates: start: 20161020, end: 20161024

REACTIONS (4)
  - Drug hypersensitivity [Recovering/Resolving]
  - Throat tightness [Recovering/Resolving]
  - Tongue oedema [Recovering/Resolving]
  - Urticaria [Recovering/Resolving]

NARRATIVE: CASE EVENT DATE: 20161024
